FAERS Safety Report 17565687 (Version 1)
Quarter: 2020Q1

REPORT INFORMATION
  Report Type: Spontaneous
  Country: US (occurrence: US)
  Receive Date: 20200314
  Receipt Date: 20200314
  Transmission Date: 20200409
  Serious: No
  Sender: FDA-Public Use
  Company Number: None

PATIENT
  Age: 56 Year
  Sex: Female

DRUGS (7)
  1. OCALIVA [Suspect]
     Active Substance: OBETICHOLIC ACID
     Indication: PRIMARY BILIARY CHOLANGITIS
     Route: 048
     Dates: start: 20200131
  2. URSODIOL. [Concomitant]
     Active Substance: URSODIOL
  3. FUROSEMIDE. [Concomitant]
     Active Substance: FUROSEMIDE
  4. NADOLOL. [Concomitant]
     Active Substance: NADOLOL
  5. XIFAXAN [Concomitant]
     Active Substance: RIFAXIMIN
  6. ALENDRINATE [Concomitant]
  7. SPIRONOLACT [Concomitant]
     Active Substance: SPIRONOLACTONE

REACTIONS (1)
  - Pruritus [None]

NARRATIVE: CASE EVENT DATE: 2020
